FAERS Safety Report 9231306 (Version 3)
Quarter: 2013Q3

REPORT INFORMATION
  Report Type: Spontaneous
  Country: NO (occurrence: NO)
  Receive Date: 20130415
  Receipt Date: 20130913
  Transmission Date: 20140515
  Serious: Yes (Other)
  Sender: FDA-Public Use
  Company Number: NO-PFIZER INC-2013117117

PATIENT
  Age: 76 Year
  Sex: Female

DRUGS (5)
  1. LYRICA [Suspect]
     Indication: NEURALGIA
     Dosage: 150 MG, 1X/DAY
     Dates: start: 2003
  2. LYRICA [Suspect]
     Dosage: 150 MG, 2X/DAY (MORNING AND EVENING)
  3. CANDESARTAN [Concomitant]
     Indication: HYPERTENSION
     Dosage: 16 MG, UNK
  4. MAREVAN [Concomitant]
     Dosage: UNK
  5. EMCONCOR [Concomitant]
     Indication: ATRIAL FIBRILLATION
     Dosage: UNK

REACTIONS (2)
  - Cardiac fibrillation [Not Recovered/Not Resolved]
  - Cold sweat [Not Recovered/Not Resolved]
